FAERS Safety Report 6453802-4 (Version None)
Quarter: 2009Q4

REPORT INFORMATION
  Report Type: 
  Country: None (occurrence: None)
  Receive Date: 20091124
  Receipt Date: 20090911
  Transmission Date: 20100525
  Serious: No
  Sender: FDA-Public Use
  Company Number: US-AMGEN-US364106

PATIENT
  Sex: Female

DRUGS (2)
  1. NPLATE [Suspect]
     Indication: IDIOPATHIC THROMBOCYTOPENIC PURPURA
     Dates: start: 20080911, end: 20090402
  2. CORTICOSTEROIDS [Concomitant]
     Dates: start: 20050801

REACTIONS (2)
  - COUGH [None]
  - RIB FRACTURE [None]
